FAERS Safety Report 9861615 (Version 1)
Quarter: 2014Q1

REPORT INFORMATION
  Report Type: Spontaneous
  Country: DE (occurrence: DE)
  Receive Date: 20140203
  Receipt Date: 20140203
  Transmission Date: 20141002
  Serious: Yes (Hospitalization)
  Sender: FDA-Public Use
  Company Number: DE-BIOGENIDEC-2014BI008993

PATIENT
  Age: 54 Year
  Sex: Female

DRUGS (1)
  1. AVONEX [Suspect]
     Indication: MULTIPLE SCLEROSIS
     Route: 030
     Dates: start: 20120119

REACTIONS (8)
  - Crying [Recovered/Resolved]
  - Sensation of foreign body [Recovered/Resolved]
  - Tongue movement disturbance [Recovered/Resolved]
  - Chest pain [Recovered/Resolved]
  - Sensory disturbance [Recovered/Resolved]
  - Gastritis bacterial [Recovered/Resolved]
  - Oesophageal candidiasis [Recovered/Resolved]
  - Multiple sclerosis relapse [Recovered/Resolved]
